FAERS Safety Report 5480653-X (Version None)
Quarter: 2007Q4

REPORT INFORMATION
  Report Type: 
  Country: None (occurrence: None)
  Receive Date: 20071009
  Receipt Date: 20070927
  Transmission Date: 20080405
  Serious: Yes (Other)
  Sender: FDA-Public Use
  Company Number: US-JNJFOC-20070805503

PATIENT
  Sex: Female
  Weight: 29.48 kg

DRUGS (4)
  1. INVEGA [Suspect]
     Indication: BIPOLAR DISORDER
     Route: 048
  2. SEROQUEL [Concomitant]
     Indication: BIPOLAR DISORDER
  3. CLONADINE [Concomitant]
     Indication: BIPOLAR DISORDER
  4. TRILEPTAL [Concomitant]

REACTIONS (1)
  - DYSTONIA [None]
